FAERS Safety Report 25384035 (Version 1)
Quarter: 2025Q2

REPORT INFORMATION
  Report Type: Spontaneous
  Country: CN (occurrence: CN)
  Receive Date: 20250602
  Receipt Date: 20250602
  Transmission Date: 20250717
  Serious: Yes (Other)
  Sender: COSETTE PHARMACEUTICALS INC
  Company Number: CN-SA-2025SA145717

PATIENT

DRUGS (1)
  1. AMBIEN [Suspect]
     Active Substance: ZOLPIDEM TARTRATE
     Indication: Sleep disorder
     Route: 048
     Dates: start: 20250516, end: 20250516

REACTIONS (8)
  - Hypokalaemia [Recovering/Resolving]
  - Gastrointestinal disorder [Recovering/Resolving]
  - Chest discomfort [Recovering/Resolving]
  - Hypocalcaemia [Recovering/Resolving]
  - Vomiting [Recovering/Resolving]
  - Nausea [Recovering/Resolving]
  - Asthenia [Recovering/Resolving]
  - Palpitations [Recovering/Resolving]

NARRATIVE: CASE EVENT DATE: 20250516
